FAERS Safety Report 25267240 (Version 1)
Quarter: 2025Q2

REPORT INFORMATION
  Report Type: Spontaneous
  Country: GB (occurrence: GB)
  Receive Date: 20250505
  Receipt Date: 20250505
  Transmission Date: 20250716
  Serious: Yes (Other)
  Sender: TEVA
  Company Number: GB-MHRA-TPP18499496C28465492YC1746024067352

PATIENT
  Age: 52 Year
  Sex: Female
  Weight: 104 kg

DRUGS (3)
  1. AMLODIPINE [Suspect]
     Active Substance: AMLODIPINE BESYLATE
     Indication: Ill-defined disorder
     Dosage: TAKE ONE DAILY, 5MG TABLETS
     Route: 048
     Dates: start: 20250218
  2. LERCANIDIPINE HYDROCHLORIDE [Concomitant]
     Active Substance: LERCANIDIPINE HYDROCHLORIDE
     Indication: Ill-defined disorder
     Dosage: TAKE ONE DAILY
     Route: 065
     Dates: start: 20250430
  3. NAPROXEN [Concomitant]
     Active Substance: NAPROXEN
     Indication: Ill-defined disorder
     Dosage: TAKE ONE TABLET TWICE DAILY WHEN REQUIRED FOR P...
     Route: 065
     Dates: start: 20250403, end: 20250417

REACTIONS (1)
  - Joint swelling [Recovered/Resolved]
